FAERS Safety Report 17769699 (Version 3)
Quarter: 2020Q2

REPORT INFORMATION
  Report Type: Spontaneous
  Country: US (occurrence: US)
  Receive Date: 20200512
  Receipt Date: 20200622
  Transmission Date: 20200714
  Serious: No
  Sender: FDA-Public Use
  Company Number: US-PFIZER INC-2020188709

PATIENT
  Age: 56 Year
  Sex: Female

DRUGS (1)
  1. LORBRENA [Suspect]
     Active Substance: LORLATINIB
     Indication: LUNG NEOPLASM MALIGNANT
     Dosage: 25 MG

REACTIONS (5)
  - Poor quality product administered [Unknown]
  - Product storage error [Unknown]
  - Product complaint [Unknown]
  - Product physical issue [Unknown]
  - Malaise [Unknown]
